FAERS Safety Report 7870893-4 (Version None)
Quarter: 2011Q4

REPORT INFORMATION
  Report Type: 
  Country: None (occurrence: None)
  Receive Date: 20111029
  Receipt Date: 20110221
  Transmission Date: 20120403
  Serious: Yes (Hospitalization)
  Sender: FDA-Public Use
  Company Number: US-AMGEN-USASP2011009927

PATIENT
  Sex: Male

DRUGS (2)
  1. ENBREL [Suspect]
     Indication: PSORIASIS
     Dates: start: 20041201, end: 20110219
  2. METHOTREXATE [Concomitant]
     Dates: start: 20070101

REACTIONS (3)
  - PSORIASIS [None]
  - PNEUMONIA [None]
  - HYPERSENSITIVITY [None]
